FAERS Safety Report 5288932-6 (Version None)
Quarter: 2007Q2

REPORT INFORMATION
  Report Type: 
  Country: None (occurrence: None)
  Receive Date: 20070405
  Receipt Date: 20070402
  Transmission Date: 20071010
  Serious: Yes (Other)
  Sender: FDA-Public Use
  Company Number: US-PFIZER INC-2006126237

PATIENT
  Sex: Female

DRUGS (3)
  1. CELEBREX [Suspect]
  2. BEXTRA [Suspect]
     Indication: ARTHRITIS
     Dates: start: 20041024, end: 20041226
  3. VIOXX [Suspect]
     Dates: start: 20000601, end: 20010101

REACTIONS (4)
  - BALANCE DISORDER [None]
  - DIZZINESS [None]
  - ISCHAEMIC STROKE [None]
  - TINNITUS [None]
